FAERS Safety Report 15141711 (Version 1)
Quarter: 2018Q3

REPORT INFORMATION
  Report Type: Spontaneous
  Country: US (occurrence: US)
  Receive Date: 20180618
  Receipt Date: 20180618
  Transmission Date: 20181010
  Serious: Yes (Hospitalization)
  Sender: FDA-Public Use
  Company Number: None

PATIENT
  Age: 59 Year
  Sex: Female

DRUGS (17)
  1. FOLBEE PLUS [Concomitant]
  2. NAMENDA [Concomitant]
     Active Substance: MEMANTINE HYDROCHLORIDE
  3. PANTOPRAZOLE [Concomitant]
     Active Substance: PANTOPRAZOLE
  4. CALCIUM D [Concomitant]
     Active Substance: CALCIUM\VITAMIN D
  5. COQ10 [Concomitant]
     Active Substance: UBIDECARENONE
  6. GABAPENTIN. [Concomitant]
     Active Substance: GABAPENTIN
  7. OCALIVA [Suspect]
     Active Substance: OBETICHOLIC ACID
     Indication: PRIMARY BILIARY CHOLANGITIS
     Route: 048
     Dates: start: 20170228
  8. L?ARGININE [Concomitant]
     Active Substance: ARGININE
  9. PRAVASTATIN. [Concomitant]
     Active Substance: PRAVASTATIN
  10. URSODIOL. [Concomitant]
     Active Substance: URSODIOL
  11. VITAMIN A [Concomitant]
     Active Substance: VITAMIN A
  12. COUMADIN [Concomitant]
     Active Substance: WARFARIN SODIUM
  13. PLAVIX [Concomitant]
     Active Substance: CLOPIDOGREL BISULFATE
  14. PRESERVISION [Concomitant]
     Active Substance: MINERALS\VITAMINS
  15. ZETIA [Concomitant]
     Active Substance: EZETIMIBE
  16. GLUCOSAMINE [Concomitant]
     Active Substance: GLUCOSAMINE
  17. VITAMIN D3 [Concomitant]
     Active Substance: CHOLECALCIFEROL

REACTIONS (4)
  - Gastric disorder [None]
  - Ovarian cyst [None]
  - Drug dose omission [None]
  - Nephrolithiasis [None]

NARRATIVE: CASE EVENT DATE: 20180612
